FAERS Safety Report 7821495-7 (Version None)
Quarter: 2011Q4

REPORT INFORMATION
  Report Type: 
  Country: None (occurrence: None)
  Receive Date: 20111018
  Receipt Date: 20111014
  Transmission Date: 20120403
  Serious: Yes (Other)
  Sender: FDA-Public Use
  Company Number: GXKR2011DE03056

PATIENT
  Sex: Male

DRUGS (2)
  1. TRIAMCINOLONE [Suspect]
     Dosage: 4 UKN, UNK
     Route: 030
     Dates: start: 20010101
  2. AZATHIOPRINE [Interacting]
     Route: 065

REACTIONS (5)
  - RASH [None]
  - ANXIETY [None]
  - DEPRESSED LEVEL OF CONSCIOUSNESS [None]
  - SKIN EXFOLIATION [None]
  - EYE SWELLING [None]
